FAERS Safety Report 12383089 (Version 3)
Quarter: 2016Q3

REPORT INFORMATION
  Report Type: Report from Study
  Country: US (occurrence: US)
  Receive Date: 20160518
  Receipt Date: 20160728
  Transmission Date: 20161109
  Serious: Yes (Death, Hospitalization)
  Sender: FDA-Public Use
  Company Number: US-ACTELION-A-NJ2016-133148

PATIENT
  Age: 43 Year
  Sex: Female

DRUGS (11)
  1. BUMETANIDE. [Concomitant]
     Active Substance: BUMETANIDE
  2. POTASSIUM CHLORIDE. [Concomitant]
     Active Substance: POTASSIUM CHLORIDE
  3. DIGOXIN. [Concomitant]
     Active Substance: DIGOXIN
  4. TRACLEER [Suspect]
     Active Substance: BOSENTAN
     Indication: PULMONARY ARTERIAL HYPERTENSION
     Dosage: 125 MG, BID
     Route: 048
     Dates: start: 2007, end: 20160606
  5. METOLAZONE. [Concomitant]
     Active Substance: METOLAZONE
  6. ADCIRCA [Concomitant]
     Active Substance: TADALAFIL
  7. ULORIC [Concomitant]
     Active Substance: FEBUXOSTAT
  8. SPIRONOLACTONE. [Concomitant]
     Active Substance: SPIRONOLACTONE
  9. OMEPRAZOLE. [Concomitant]
     Active Substance: OMEPRAZOLE
  10. REMODULIN [Concomitant]
     Active Substance: TREPROSTINIL
  11. COLCHICINE. [Concomitant]
     Active Substance: COLCHICINE

REACTIONS (6)
  - Fluid retention [Recovering/Resolving]
  - Dyspnoea [Not Recovered/Not Resolved]
  - Pain in jaw [Recovered/Resolved]
  - Pulmonary arterial hypertension [Fatal]
  - Urine output decreased [Not Recovered/Not Resolved]
  - Headache [Recovered/Resolved]

NARRATIVE: CASE EVENT DATE: 20160302
